FAERS Safety Report 5848428-7 (Version None)
Quarter: 2008Q3

REPORT INFORMATION
  Report Type: 
  Country: None (occurrence: None)
  Receive Date: 20080818
  Receipt Date: 20080804
  Transmission Date: 20090109
  Serious: Yes (Hospitalization)
  Sender: FDA-Public Use
  Company Number: FR-ROCHE-579970

PATIENT
  Age: 55 Year
  Sex: Female

DRUGS (2)
  1. PEGASYS [Suspect]
     Indication: HEPATITIS
     Dosage: FORM: INJECTABLE AMPOUL.
     Route: 058
  2. COPEGUS [Suspect]
     Indication: HEPATITIS
     Route: 048

REACTIONS (1)
  - ERYTHEMA NODOSUM [None]
